FAERS Safety Report 6502997-2 (Version None)
Quarter: 2009Q4

REPORT INFORMATION
  Report Type: 
  Country: None (occurrence: None)
  Receive Date: 20091217
  Receipt Date: 20091204
  Transmission Date: 20100525
  Serious: Yes (Hospitalization, Other)
  Sender: FDA-Public Use
  Company Number: US-ELI_LILLY_AND_COMPANY-US200910004687

PATIENT
  Sex: Female

DRUGS (1)
  1. FORTEO [Suspect]
     Indication: PELVIC FRACTURE
     Dosage: UNK, UNK
     Dates: start: 20090701

REACTIONS (10)
  - BEDRIDDEN [None]
  - FALL [None]
  - FEELING ABNORMAL [None]
  - IMMOBILE [None]
  - INJECTION SITE PRURITUS [None]
  - MONOPARESIS [None]
  - MUSCULAR WEAKNESS [None]
  - OFF LABEL USE [None]
  - SOMNOLENCE [None]
  - UPPER LIMB FRACTURE [None]
